FAERS Safety Report 18968214 (Version 1)
Quarter: 2021Q1

REPORT INFORMATION
  Report Type: Report from Study
  Country: CA (occurrence: CA)
  Receive Date: 20210304
  Receipt Date: 20210304
  Transmission Date: 20210420
  Serious: Yes (Other)
  Sender: FDA-Public Use
  Company Number: CA-JNJFOC-20210247944

PATIENT
  Age: 15 Year
  Sex: Male
  Weight: 64 kg

DRUGS (1)
  1. REMICADE [Suspect]
     Active Substance: INFLIXIMAB
     Indication: COLITIS ULCERATIVE
     Dosage: ON 25?FEB?2021, THE PATIENT RECEIVED 08TH INFLIXIMAB INFUSION AT DOSE OF 500 MG.
     Route: 042
     Dates: start: 20200827

REACTIONS (2)
  - General physical health deterioration [Unknown]
  - Haematochezia [Unknown]

NARRATIVE: CASE EVENT DATE: 20210222
